FAERS Safety Report 15721323 (Version 1)
Quarter: 2018Q4

REPORT INFORMATION
  Report Type: Spontaneous
  Country: PL (occurrence: PL)
  Receive Date: 20181214
  Receipt Date: 20181214
  Transmission Date: 20190205
  Serious: Yes (Hospitalization, Other)
  Sender: FDA-Public Use
  Company Number: PL-ACCORD-095924

PATIENT
  Age: 30 Year
  Sex: Female

DRUGS (3)
  1. LEVETIRACETAM. [Suspect]
     Active Substance: LEVETIRACETAM
     Indication: JUVENILE MYOCLONIC EPILEPSY
     Dosage: ABOUT 5 YEARS, AT MAXIMUM ACCEPTABLE DOSES
     Route: 065
  2. LAMOTRIGINE. [Suspect]
     Active Substance: LAMOTRIGINE
     Indication: JUVENILE MYOCLONIC EPILEPSY
     Dosage: FOR ABOUT 5 YEARS, AT MAXIMUM ACCEPTABLE DOSES
     Route: 065
  3. VALPROIC ACID. [Suspect]
     Active Substance: VALPROIC ACID
     Indication: JUVENILE MYOCLONIC EPILEPSY
     Dosage: 1000 MG
     Route: 065

REACTIONS (7)
  - Petit mal epilepsy [Recovering/Resolving]
  - Myoclonus [Recovering/Resolving]
  - Drug ineffective [Unknown]
  - Generalised tonic-clonic seizure [Recovering/Resolving]
  - Seizure [Recovered/Resolved]
  - Drug level decreased [Recovered/Resolved]
  - Malabsorption [Recovered/Resolved]

NARRATIVE: CASE EVENT DATE: 2014
